FAERS Safety Report 16184929 (Version 1)
Quarter: 2019Q2

REPORT INFORMATION
  Report Type: Spontaneous
  Country: US (occurrence: US)
  Receive Date: 20190308
  Receipt Date: 20190308
  Transmission Date: 20190711
  Serious: No
  Sender: FDA-Public Use
  Company Number: None

PATIENT
  Age: 49 Year
  Sex: Male

DRUGS (1)
  1. FYCOMPA [Suspect]
     Active Substance: PERAMPANEL
     Indication: SEIZURE
     Dosage: ?          QUANTITY:10 MG MILLIGRAM(S);?
     Route: 048

REACTIONS (2)
  - Physical assault [None]
  - Abnormal behaviour [None]

NARRATIVE: CASE EVENT DATE: 20181121
